FAERS Safety Report 5500356-2 (Version None)
Quarter: 2007Q4

REPORT INFORMATION
  Report Type: 
  Country: None (occurrence: None)
  Receive Date: 20071025
  Receipt Date: 20071019
  Transmission Date: 20080405
  Serious: Yes (Other)
  Sender: FDA-Public Use
  Company Number: 163-20785-07070941

PATIENT
  Age: 11 Year
  Sex: Female

DRUGS (1)
  1. THALOMID [Suspect]
     Indication: CROHN'S DISEASE
     Dosage: 50-100 MG, QD; ORAL
     Route: 048
     Dates: start: 20051209

REACTIONS (1)
  - MASS [None]
